FAERS Safety Report 12451052 (Version 1)
Quarter: 2016Q2

REPORT INFORMATION
  Report Type: Spontaneous
  Country: US (occurrence: None)
  Receive Date: 20160608
  Receipt Date: 20160608
  Transmission Date: 20160815
  Serious: Yes (Hospitalization)
  Sender: FDA-Public Use
  Company Number: None

PATIENT
  Age: 67 Year
  Sex: Female
  Weight: 69.3 kg

DRUGS (3)
  1. ACYCLOVIR. [Suspect]
     Active Substance: ACYCLOVIR
     Indication: ENCEPHALITIS
     Dosage: IV (NOT OTHERWISE SPECIFIED)
     Route: 042
     Dates: start: 20160531, end: 20160607
  2. ACYCLOVIR. [Suspect]
     Active Substance: ACYCLOVIR
     Indication: BLOOD CULTURE POSITIVE
     Dosage: IV (NOT OTHERWISE SPECIFIED)
     Route: 042
     Dates: start: 20160531, end: 20160607
  3. VANCOMYCIN [Concomitant]
     Active Substance: VANCOMYCIN

REACTIONS (1)
  - Acute kidney injury [None]

NARRATIVE: CASE EVENT DATE: 20160605
